FAERS Safety Report 5256574-4 (Version None)
Quarter: 2007Q1

REPORT INFORMATION
  Report Type: 
  Country: None (occurrence: None)
  Receive Date: 20070306
  Receipt Date: 20070227
  Transmission Date: 20070707
  Serious: Yes (Life-Threatening, Hospitalization, Other)
  Sender: FDA-Public Use
  Company Number: FR-NOVOPROD-254803

PATIENT
  Sex: Female
  Weight: 71.7 kg

DRUGS (10)
  1. NOVOSEVEN [Suspect]
     Indication: CEREBRAL HAEMORRHAGE
     Dosage: 20 UG/KG, SINGLE
     Route: 042
     Dates: start: 20060707, end: 20060707
  2. METOCLOPRAMIDE [Concomitant]
     Dosage: 10 MG, QD
     Route: 042
     Dates: start: 20060707, end: 20060709
  3. NICARDIPINE HYDROCHLORIDE [Concomitant]
     Dosage: 30 MG, QD
     Route: 042
     Dates: start: 20060710, end: 20060712
  4. ACETAMINOPHEN [Concomitant]
     Dosage: 3 G, QD
     Route: 042
     Dates: start: 20060707
  5. OMEPRAZOLE [Concomitant]
     Dosage: 40 MG, QD
     Route: 042
     Dates: start: 20060707
  6. ENOXAPARIN SODIUM [Concomitant]
     Dosage: .2 ML, QD
     Route: 058
     Dates: start: 20060711, end: 20060715
  7. ENOXAPARIN SODIUM [Concomitant]
     Dosage: .4 ML, UNK
     Dates: start: 20060715, end: 20060717
  8. NICORANDIL [Concomitant]
     Dosage: 10 MG, QD
     Route: 048
     Dates: start: 20060714
  9. INIPOMP [Concomitant]
     Dosage: 40 MG, QD
     Route: 048
     Dates: start: 20060714
  10. AMOXI-CLAVULANICO [Concomitant]
     Dosage: 3 G, QD
     Route: 042
     Dates: start: 20060715, end: 20060725

REACTIONS (3)
  - MYOCARDIAL INFARCTION [None]
  - RECTAL HAEMORRHAGE [None]
  - TROPONIN INCREASED [None]
